FAERS Safety Report 15542351 (Version 3)
Quarter: 2019Q2

REPORT INFORMATION
  Report Type: Other
  Country: TH (occurrence: TH)
  Receive Date: 20181023
  Receipt Date: 20190417
  Transmission Date: 20190711
  Serious: Yes (Other)
  Sender: FDA-Public Use
  Company Number: TH-PROVELL PHARMACEUTICALS-2056848

PATIENT
  Age: 35 Year
  Sex: Female

DRUGS (2)
  1. LEVOTHYROXINE. [Suspect]
     Active Substance: LEVOTHYROXINE
  2. EUTHYROX [Suspect]
     Active Substance: LEVOTHYROXINE SODIUM
     Indication: POST PROCEDURAL HYPOTHYROIDISM

REACTIONS (3)
  - Hyperthyroidism [Recovered/Resolved]
  - Treatment noncompliance [None]
  - Hypothyroidism [Recovered/Resolved]
